FAERS Safety Report 6536912-2 (Version None)
Quarter: 2010Q1

REPORT INFORMATION
  Report Type: 
  Country: None (occurrence: None)
  Receive Date: 20100105
  Receipt Date: 20091106
  Transmission Date: 20100710
  Serious: Yes (Life-Threatening, Hospitalization)
  Sender: FDA-Public Use
  Company Number: DSA_42054_2009

PATIENT
  Sex: Female

DRUGS (4)
  1. CARDIZEM [Suspect]
     Indication: PRINZMETAL ANGINA
     Dosage: (90 MG BID ORAL)
     Route: 048
     Dates: start: 20090923, end: 20090929
  2. SPARKAL [Concomitant]
  3. DISPERIN [Concomitant]
  4. LIPITOR [Concomitant]

REACTIONS (8)
  - CHILLS [None]
  - EYE DISORDER [None]
  - HYPERTENSION [None]
  - INFECTION [None]
  - PYREXIA [None]
  - STEVENS-JOHNSON SYNDROME [None]
  - TACHYCARDIA [None]
  - URTICARIA [None]
